FAERS Safety Report 8519135 (Version 7)
Quarter: 2013Q4

REPORT INFORMATION
  Report Type: Report from Study
  Country: CA (occurrence: CA)
  Receive Date: 20120418
  Receipt Date: 20131104
  Transmission Date: 20140711
  Serious: Yes (Death, Life-Threatening, Hospitalization, Other)
  Sender: FDA-Public Use
  Company Number: PHHY2012CA023617

PATIENT
  Age: 72 Year
  Sex: Female

DRUGS (8)
  1. SANDOSTATIN LAR [Suspect]
     Indication: VIPOMA
     Dosage: 30 MG, QMO
     Route: 030
     Dates: start: 20111201
  2. SANDOSTATIN LAR [Suspect]
     Dosage: UNK
  3. SANDOSTATIN LAR [Suspect]
     Dosage: 30 MG, EVERY 4 WEEKS
     Route: 030
  4. SANDOSTATIN LAR [Suspect]
     Dosage: 20 MG, EVERY 3 WEEKS
     Route: 030
  5. SANDOSTATIN LAR [Suspect]
     Dosage: 30 MG, EVERY 3 WEEKS
     Route: 030
  6. SANDOSTATIN LAR [Suspect]
     Dosage: 30 MG, EVERY 3 WEEKS
     Route: 030
     Dates: start: 201307
  7. SANDOSTATIN [Suspect]
     Indication: VIPOMA
     Dosage: UNK UKN, BID
     Route: 058
     Dates: start: 201112
  8. AFINITOR [Suspect]
     Indication: VIPOMA
     Dosage: 10 MG DAILY
     Route: 048
     Dates: start: 20121003

REACTIONS (7)
  - Death [Fatal]
  - Procedural complication [Recovering/Resolving]
  - Electrolyte imbalance [Unknown]
  - General physical health deterioration [Unknown]
  - Nausea [Unknown]
  - Fatigue [Unknown]
  - Diarrhoea [Not Recovered/Not Resolved]
